FAERS Safety Report 6286045-8 (Version None)
Quarter: 2009Q3

REPORT INFORMATION
  Report Type: 
  Country: None (occurrence: None)
  Receive Date: 20090728
  Receipt Date: 20090722
  Transmission Date: 20100115
  Serious: Yes (Hospitalization)
  Sender: FDA-Public Use
  Company Number: GB-BAYER-200912659BNE

PATIENT
  Age: 35 Year
  Sex: Female

DRUGS (10)
  1. SORAFENIB [Suspect]
     Indication: THYROID CANCER METASTATIC
     Dosage: TOTAL DAILY DOSE: 800 MG
     Dates: start: 20070725, end: 20070806
  2. SORAFENIB [Suspect]
     Dates: start: 20071015, end: 20080430
  3. SORAFENIB [Suspect]
     Dates: start: 20090718
  4. SORAFENIB [Suspect]
     Dates: start: 20081024, end: 20090703
  5. SORAFENIB [Suspect]
     Dates: start: 20080506, end: 20081024
  6. SORAFENIB [Suspect]
     Dosage: AS USED: 200 MG
     Dates: start: 20070824, end: 20071015
  7. FERROUS SULFATE TAB [Concomitant]
     Indication: DRUG USE FOR UNKNOWN INDICATION
     Dates: start: 20090519
  8. ALFACALCIDOL [Concomitant]
     Indication: DRUG USE FOR UNKNOWN INDICATION
  9. CHLORAMPHENICOL [Concomitant]
     Indication: BLEPHARITIS
     Dates: start: 20090528, end: 20090603
  10. CODEINE SUL TAB [Concomitant]
     Indication: DIARRHOEA
     Dates: start: 20070806

REACTIONS (4)
  - ABDOMINAL DISTENSION [None]
  - HAEMATURIA [None]
  - HYPERCALCAEMIA [None]
  - MENORRHAGIA [None]
